FAERS Safety Report 17542194 (Version 3)
Quarter: 2020Q2

REPORT INFORMATION
  Report Type: Spontaneous
  Country: FI (occurrence: FI)
  Receive Date: 20200313
  Receipt Date: 20200617
  Transmission Date: 20200713
  Serious: Yes (Other)
  Sender: FDA-Public Use
  Company Number: FI-ELI_LILLY_AND_COMPANY-FI201909009204

PATIENT
  Age: 42 Year
  Sex: Male

DRUGS (3)
  1. ZYPADHERA [Suspect]
     Active Substance: OLANZAPINE PAMOATE
     Indication: SCHIZOPHRENIA
     Dosage: 300 MG, EVERY THREE WEEKS
     Route: 030
     Dates: start: 20190123
  2. ZYPADHERA [Suspect]
     Active Substance: OLANZAPINE PAMOATE
     Indication: SCHIZOPHRENIA
     Dosage: 300 MG, EVERY THREE WEEKS
     Route: 030
     Dates: start: 20190123
  3. ZYPADHERA [Suspect]
     Active Substance: OLANZAPINE PAMOATE
     Indication: SCHIZOPHRENIA
     Dosage: 300 MG, EVERY THREE WEEKS
     Route: 030
     Dates: start: 20190123

REACTIONS (7)
  - Heart rate increased [Unknown]
  - Somnolence [Unknown]
  - Balance disorder [Unknown]
  - Blood pressure increased [Unknown]
  - Dysarthria [Not Recovered/Not Resolved]
  - Dizziness [Recovered/Resolved]
  - Post-injection delirium sedation syndrome [Recovered/Resolved]

NARRATIVE: CASE EVENT DATE: 20190916
